FAERS Safety Report 6284086-8 (Version None)
Quarter: 2009Q3

REPORT INFORMATION
  Report Type: 
  Country: None (occurrence: None)
  Receive Date: 20090727
  Receipt Date: 20090715
  Transmission Date: 20100115
  Serious: Yes (Hospitalization)
  Sender: FDA-Public Use
  Company Number: US-ELI_LILLY_AND_COMPANY-US200907003146

PATIENT
  Sex: Male

DRUGS (1)
  1. HUMATROPE [Suspect]
     Indication: SHORT-BOWEL SYNDROME
     Dates: start: 20080101

REACTIONS (5)
  - DEVICE MISUSE [None]
  - GASTROINTESTINAL BACTERIAL INFECTION [None]
  - INCORRECT DOSE ADMINISTERED [None]
  - OFF LABEL USE [None]
  - SHORT-BOWEL SYNDROME [None]
